FAERS Safety Report 18403636 (Version 1)
Quarter: 2020Q4

REPORT INFORMATION
  Report Type: Spontaneous
  Country: US (occurrence: US)
  Receive Date: 20201019
  Receipt Date: 20201019
  Transmission Date: 20210114
  Serious: Yes (Other)
  Sender: FDA-Public Use
  Company Number: None

PATIENT
  Age: 32 Year
  Sex: Female
  Weight: 77.4 kg

DRUGS (6)
  1. TYLENOL [Concomitant]
     Active Substance: ACETAMINOPHEN
  2. AJOVY [Suspect]
     Active Substance: FREMANEZUMAB-VFRM
     Indication: MIGRAINE PROPHYLAXIS
     Dosage: ?          QUANTITY:1 INJECTION(S);OTHER FREQUENCY:1/MONTH;?
     Route: 058
     Dates: start: 20200914
  3. MAXALT [Concomitant]
     Active Substance: RIZATRIPTAN BENZOATE
  4. MELATONIN [Concomitant]
     Active Substance: MELATONIN
  5. TAURINE [Concomitant]
     Active Substance: TAURINE
  6. ADVIL [Concomitant]
     Active Substance: IBUPROFEN

REACTIONS (1)
  - Alopecia [None]

NARRATIVE: CASE EVENT DATE: 20200925
